FAERS Safety Report 25586393 (Version 1)
Quarter: 2025Q3

REPORT INFORMATION
  Report Type: Spontaneous
  Country: US (occurrence: None)
  Receive Date: 20250721
  Receipt Date: 20250721
  Transmission Date: 20251021
  Serious: No
  Sender: FDA-CTU
  Company Number: None

PATIENT
  Age: 69 Year
  Sex: Male
  Weight: 96.62 kg

DRUGS (1)
  1. RASUVO [Suspect]
     Active Substance: METHOTREXATE SODIUM
     Indication: Rheumatoid arthritis
     Dosage: OTHER FREQUENCY : WEEKLY ON THE SAME DAY EACH WEEK;?
     Route: 058
     Dates: start: 202503

REACTIONS (2)
  - Blood sodium decreased [None]
  - Pneumonia [None]
